FAERS Safety Report 5280938-6 (Version None)
Quarter: 2007Q1

REPORT INFORMATION
  Report Type: 
  Country: None (occurrence: None)
  Receive Date: 20070329
  Receipt Date: 20070314
  Transmission Date: 20070707
  Serious: Yes (Hospitalization)
  Sender: FDA-Public Use
  Company Number: US-SHR-US-2007-002625

PATIENT
  Age: 30 Year
  Sex: Female
  Weight: 83.447 kg

DRUGS (5)
  1. BETASERON [Suspect]
     Indication: RELAPSING-REMITTING MULTIPLE SCLEROSIS
     Dosage: 8 MIU, EVERY 2D
     Route: 058
     Dates: start: 20061120, end: 20061222
  2. HUMALOG [Concomitant]
  3. SERTRALINE [Concomitant]
     Dosage: 200 UNK, UNK
  4. ZYPREXA [Concomitant]
     Indication: DEPRESSION
     Dosage: 5 UNK, UNK
  5. THEOPHYLLINE [Concomitant]
     Indication: ASTHMA
     Dosage: 300 UNK, 2X/DAY

REACTIONS (3)
  - BRONCHITIS [None]
  - DIABETIC KETOACIDOSIS [None]
  - LIPASE INCREASED [None]
